FAERS Safety Report 6240585-6 (Version None)
Quarter: 2009Q2

REPORT INFORMATION
  Report Type: 
  Country: None (occurrence: None)
  Receive Date: 20090623
  Receipt Date: 20081017
  Transmission Date: 20091009
  Serious: No
  Sender: FDA-Public Use
  Company Number: US-ASTRAZENECA-2008UW23065

PATIENT
  Age: 74 Year
  Sex: Female
  Weight: 86.2 kg

DRUGS (8)
  1. PULMICORT FLEXHALER [Suspect]
     Indication: ASTHMA
     Route: 055
  2. PULMICORT FLEXHALER [Suspect]
     Indication: ALLERGIC COUGH
     Route: 055
  3. PREVACID [Concomitant]
  4. MULTI-VITAMIN [Concomitant]
  5. COZAAR [Concomitant]
  6. TEKTURNA [Concomitant]
  7. CORDURA [Concomitant]
  8. PREDNISONE TAB [Concomitant]

REACTIONS (3)
  - ASTHENIA [None]
  - THROAT IRRITATION [None]
  - TREMOR [None]
